FAERS Safety Report 15454296 (Version 2)
Quarter: 2018Q4

REPORT INFORMATION
  Report Type: Spontaneous
  Country: AU (occurrence: AU)
  Receive Date: 20181002
  Receipt Date: 20181018
  Transmission Date: 20190204
  Serious: Yes (Hospitalization, Other)
  Sender: FDA-Public Use
  Company Number: AU-ROCHE-2192111

PATIENT
  Age: 66 Year
  Sex: Female
  Weight: 87 kg

DRUGS (11)
  1. PLAQUENIL [Concomitant]
     Active Substance: HYDROXYCHLOROQUINE SULFATE
  2. NEXIUM [Concomitant]
     Active Substance: ESOMEPRAZOLE MAGNESIUM
  3. NORSPAN (AUSTRALIA) [Concomitant]
  4. ACTEMRA [Suspect]
     Active Substance: TOCILIZUMAB
     Indication: RHEUMATOID ARTHRITIS
     Route: 058
     Dates: start: 201611
  5. METHOTREXATE. [Concomitant]
     Active Substance: METHOTREXATE
     Route: 048
  6. PREDNISOLONE. [Concomitant]
     Active Substance: PREDNISOLONE
     Route: 065
  7. ENDEP [Concomitant]
     Active Substance: AMITRIPTYLINE HYDROCHLORIDE
     Route: 065
  8. ACTEMRA [Suspect]
     Active Substance: TOCILIZUMAB
     Route: 058
  9. KETOPROFEN. [Concomitant]
     Active Substance: KETOPROFEN
     Dosage: 200 MG PRN (INFREQUENTLY)
     Route: 065
  10. NATRILIX [Concomitant]
     Active Substance: INDAPAMIDE
  11. ACTEMRA [Suspect]
     Active Substance: TOCILIZUMAB
     Indication: RHEUMATOID ARTHRITIS
     Route: 042

REACTIONS (10)
  - Pneumonia [Unknown]
  - Bacterial infection [Unknown]
  - Pneumothorax [Unknown]
  - Synovitis [Unknown]
  - Pleural effusion [Unknown]
  - Lung consolidation [Unknown]
  - Peptic ulcer [Unknown]
  - Treatment failure [Unknown]
  - Arthritis bacterial [Recovering/Resolving]
  - White blood cell count increased [Unknown]

NARRATIVE: CASE EVENT DATE: 20180824
